FAERS Safety Report 6577511-6 (Version None)
Quarter: 2010Q1

REPORT INFORMATION
  Report Type: 
  Country: None (occurrence: None)
  Receive Date: 20100211
  Receipt Date: 20100130
  Transmission Date: 20100710
  Serious: Yes (Death, Hospitalization)
  Sender: FDA-Public Use
  Company Number: PH-GENZYME-POMP-1000845

PATIENT
  Sex: Female
  Weight: 5.2 kg

DRUGS (6)
  1. MYOZYME [Suspect]
     Indication: GLYCOGEN STORAGE DISEASE TYPE II
     Dosage: 20 MG/KG, Q2W
     Route: 042
     Dates: start: 20091209
  2. SILDENAFIL CITRATE [Concomitant]
     Indication: PULMONARY VALVE INCOMPETENCE
     Dosage: 1 MG/KG, QD
     Route: 065
     Dates: start: 20091101
  3. PROPRANOLOL [Concomitant]
     Indication: DRUG USE FOR UNKNOWN INDICATION
     Dosage: 1 MG/KG, QD
     Route: 065
     Dates: start: 20091101
  4. INCREMIN IRON [Concomitant]
     Indication: MINERAL SUPPLEMENTATION
     Dosage: 1 MG/KG, QD
     Route: 065
     Dates: start: 20091101
  5. ALDACTONE [Concomitant]
     Indication: CARDIAC FAILURE CONGESTIVE
     Dosage: 1 MG/KG, QD
     Route: 065
     Dates: start: 20091101
  6. FOLIC ACID [Concomitant]
     Indication: MEDICAL DIET
     Dosage: 0.2 MG/KG, QD
     Route: 065
     Dates: start: 20091101

REACTIONS (2)
  - CARDIO-RESPIRATORY ARREST [None]
  - PNEUMONIA [None]
